FAERS Safety Report 13879930 (Version 2)
Quarter: 2019Q1

REPORT INFORMATION
  Report Type: Spontaneous
  Country: US (occurrence: US)
  Receive Date: 20170818
  Receipt Date: 20190211
  Transmission Date: 20190417
  Serious: Yes (Disabling)
  Sender: FDA-Public Use
  Company Number: US-3M-2016-US-007363

PATIENT
  Age: 65 Year
  Sex: Female
  Weight: 52.16 kg

DRUGS (1)
  1. CHLORHEXIDINE GLUCONATE (NON-SPECIFIC) [Suspect]
     Active Substance: CHLORHEXIDINE GLUCONATE
     Indication: ORAL SURGERY
     Dosage: 1 TABLESPOONFUL SWISHED IN MOUTH TWICE DAILY
     Route: 048
     Dates: start: 201603, end: 201603

REACTIONS (2)
  - Oral mucosal discolouration [Unknown]
  - Ageusia [Unknown]

NARRATIVE: CASE EVENT DATE: 201603
